FAERS Safety Report 11282566 (Version 1)
Quarter: 2015Q3

REPORT INFORMATION
  Report Type: Spontaneous
  Country: AU (occurrence: AU)
  Receive Date: 20150720
  Receipt Date: 20150720
  Transmission Date: 20151125
  Serious: Yes (Other)
  Sender: FDA-Public Use
  Company Number: AU-ROCHE-1609135

PATIENT
  Age: 33 Year
  Sex: Female

DRUGS (1)
  1. TRASTUZUMAB [Suspect]
     Active Substance: TRASTUZUMAB
     Indication: BREAST CANCER
     Route: 065

REACTIONS (9)
  - Metastases to liver [Unknown]
  - Bone pain [Unknown]
  - VIIth nerve paralysis [Unknown]
  - Metastases to bone [Unknown]
  - Osteolysis [Unknown]
  - Central nervous system lesion [Unknown]
  - Gait disturbance [Unknown]
  - Bone disorder [Unknown]
  - Metastases to neck [Unknown]

NARRATIVE: CASE EVENT DATE: 201204
